FAERS Safety Report 15907394 (Version 2)
Quarter: 2019Q1

REPORT INFORMATION
  Report Type: Spontaneous
  Country: US (occurrence: US)
  Receive Date: 20190204
  Receipt Date: 20190208
  Transmission Date: 20190417
  Serious: Yes (Death, Other)
  Sender: FDA-Public Use
  Company Number: US-ASTRAZENECA-2018SF13834

PATIENT
  Sex: Male

DRUGS (10)
  1. AMARYL [Concomitant]
     Active Substance: GLIMEPIRIDE
     Dates: start: 20031202
  2. CLONIDINE. [Concomitant]
     Active Substance: CLONIDINE
     Dates: start: 20040102
  3. LISINOPRIL. [Concomitant]
     Active Substance: LISINOPRIL
     Dates: start: 20040102
  4. AMOXICILLIN. [Concomitant]
     Active Substance: AMOXICILLIN
     Dates: start: 20031209
  5. NEXIUM [Suspect]
     Active Substance: ESOMEPRAZOLE MAGNESIUM
     Route: 048
     Dates: start: 2004, end: 2016
  6. GLIPIZIDE. [Concomitant]
     Active Substance: GLIPIZIDE
     Dates: start: 20040102
  7. LIPITOR [Concomitant]
     Active Substance: ATORVASTATIN CALCIUM
     Dates: start: 20031209
  8. GLUCOTROL [Concomitant]
     Active Substance: GLIPIZIDE
     Dates: start: 20040102
  9. NEXIUM [Suspect]
     Active Substance: ESOMEPRAZOLE MAGNESIUM
     Route: 048
     Dates: start: 20040825
  10. AVANDAMET [Concomitant]
     Active Substance: METFORMIN HYDROCHLORIDE\ROSIGLITAZONE MALEATE
     Dates: start: 20041019

REACTIONS (3)
  - Renal failure [Unknown]
  - Renal disorder [Unknown]
  - Death [Fatal]
